FAERS Safety Report 25248109 (Version 1)
Quarter: 2025Q2

REPORT INFORMATION
  Report Type: Spontaneous
  Country: JP (occurrence: JP)
  Receive Date: 20250429
  Receipt Date: 20250429
  Transmission Date: 20250717
  Serious: Yes (Other)
  Sender: ALEXION PHARMACEUTICALS
  Company Number: JP-ASTRAZENECA-250040545_013120_P_1

PATIENT
  Age: 9 Decade

DRUGS (4)
  1. IMFINZI [Suspect]
     Active Substance: DURVALUMAB
     Indication: Bile duct cancer
     Dosage: 1500 MILLIGRAM, Q3W
  2. GEMCITABINE [Concomitant]
     Active Substance: GEMCITABINE
     Indication: Bile duct cancer
     Route: 065
  3. CISPLATIN [Concomitant]
     Active Substance: CISPLATIN
     Indication: Bile duct cancer
     Route: 065
  4. TS-1 [Concomitant]
     Active Substance: GIMERACIL\OTERACIL POTASSIUM\TEGAFUR
     Indication: Bile duct cancer
     Route: 065

REACTIONS (2)
  - Malignant neoplasm progression [Unknown]
  - Metastases to liver [Unknown]
